FAERS Safety Report 24098080 (Version 1)
Quarter: 2024Q3

REPORT INFORMATION
  Report Type: Spontaneous
  Country: US (occurrence: US)
  Receive Date: 20240716
  Receipt Date: 20240716
  Transmission Date: 20241016
  Serious: Yes (Other)
  Sender: AMERICAN REGENT
  Company Number: US-AMERICAN REGENT INC-2024002690

PATIENT
  Sex: Female

DRUGS (1)
  1. FERRIC CARBOXYMALTOSE [Suspect]
     Active Substance: FERRIC CARBOXYMALTOSE
     Indication: Blood iron decreased
     Dosage: UNK
     Route: 065
     Dates: start: 20240326, end: 20240326

REACTIONS (2)
  - Mastocytosis [Unknown]
  - Stress [Unknown]

NARRATIVE: CASE EVENT DATE: 20240101
